FAERS Safety Report 8600526-0 (Version None)
Quarter: 2012Q3

REPORT INFORMATION
  Report Type: 
  Country: None (occurrence: None)
  Receive Date: 20120808
  Receipt Date: 20120808
  Transmission Date: 20120928
  Serious: Yes (Life-Threatening, Hospitalization, Other)
  Sender: FDA-Public Use
  Company Number: None

PATIENT
  Sex: Female
  Weight: 61.2356 kg

DRUGS (2)
  1. HALOPERIDOL [Suspect]
     Indication: BIPOLAR DISORDER
     Dosage: 2X PR DAY ORAL
     Route: 048
  2. HALOPERIDOL DECANOATE [Suspect]
     Indication: SCHIZOPHRENIA
     Dosage: ONCE (IM)
     Route: 030
     Dates: start: 20120401, end: 20120408

REACTIONS (3)
  - NEUROLEPTIC MALIGNANT SYNDROME [None]
  - SUICIDAL IDEATION [None]
  - EXTRAPYRAMIDAL DISORDER [None]
